FAERS Safety Report 8761391 (Version 1)
Quarter: 2012Q4

REPORT INFORMATION
  Report Type: 
  Country: US (occurrence: US)
  Receive Date: 20120830
  Receipt Date: 20120830
  Transmission Date: 20130627
  Serious: Yes (Other)
  Sender: FDA-Public Use
  Company Number: US-VERTEX PHARMACEUTICAL INC.-2012-020146

PATIENT
  Age: 48 Year
  Sex: Male
  Weight: 114 kg

DRUGS (3)
  1. INCIVEK [Suspect]
     Indication: HEPATITIS C
     Dosage: 750 mg, tid
     Route: 048
     Dates: start: 20120702, end: 20120822
  2. RIBAPAK [Concomitant]
     Indication: HEPATITIS C
     Dosage: 400 mg, bid
     Dates: start: 20120702, end: 20120822
  3. PEGASYS [Concomitant]
     Indication: HEPATITIS C
     Dosage: 180 ?g, UNK
     Route: 058
     Dates: start: 20120702, end: 20120822

REACTIONS (4)
  - Bone marrow failure [Unknown]
  - White blood cell count decreased [Unknown]
  - Platelet count decreased [Unknown]
  - Haemoglobin decreased [Unknown]
